FAERS Safety Report 5405470-8 (Version None)
Quarter: 2007Q3

REPORT INFORMATION
  Report Type: 
  Country: None (occurrence: None)
  Receive Date: 20070803
  Receipt Date: 20070724
  Transmission Date: 20080115
  Serious: Yes (Hospitalization, Other)
  Sender: FDA-Public Use
  Company Number: JP-PFIZER INC-2007051194

PATIENT
  Sex: Male
  Weight: 87 kg

DRUGS (6)
  1. LIPITOR [Suspect]
     Indication: HYPERLIPIDAEMIA
     Dosage: DAILY DOSE:10MG
     Route: 048
     Dates: start: 20061222, end: 20070615
  2. ALL OTHER THERAPEUTIC PRODUCTS [Concomitant]
  3. BUFFERIN [Concomitant]
     Route: 048
  4. TICLOPIDINE HCL [Concomitant]
     Route: 048
     Dates: start: 20050518
  5. SIGMART [Concomitant]
     Route: 048
     Dates: start: 20050518
  6. FAMOTIDINE [Concomitant]
     Route: 048
     Dates: start: 20050518

REACTIONS (4)
  - BACK PAIN [None]
  - BLOOD CREATINE PHOSPHOKINASE INCREASED [None]
  - MYALGIA [None]
  - PATELLA FRACTURE [None]
